FAERS Safety Report 4714877-3 (Version None)
Quarter: 2005Q3

REPORT INFORMATION
  Report Type: 
  Country: None (occurrence: None)
  Receive Date: 20050715
  Receipt Date: 20050705
  Transmission Date: 20060218
  Serious: Yes (Hospitalization, Other)
  Sender: FDA-Public Use
  Company Number: US-JNJFOC-20050607238

PATIENT
  Sex: Female
  Weight: 52.39 kg

DRUGS (37)
  1. INFLIXIMAB [Suspect]
     Route: 042
  2. INFLIXIMAB [Suspect]
     Route: 042
  3. INFLIXIMAB [Suspect]
     Route: 042
  4. INFLIXIMAB [Suspect]
     Route: 042
  5. INFLIXIMAB [Suspect]
     Indication: RHEUMATOID ARTHRITIS
     Route: 042
  6. METHOTREXATE [Suspect]
  7. METHOTREXATE [Suspect]
  8. METHOTREXATE [Suspect]
  9. METHOTREXATE [Suspect]
     Indication: RHEUMATOID ARTHRITIS
  10. ZOLOFT [Concomitant]
  11. ZOLOFT [Concomitant]
  12. VITAMIN B6 [Concomitant]
  13. VITAMIN B6 [Concomitant]
  14. VITAMIN B6 [Concomitant]
  15. VITAMIN B6 [Concomitant]
  16. VITAMIN B6 [Concomitant]
  17. VITAMIN B-12 [Concomitant]
  18. FOLIC ACID [Concomitant]
  19. PREDNISONE [Concomitant]
  20. PREDNISONE [Concomitant]
  21. PREVACID [Concomitant]
  22. LORAZEPAM [Concomitant]
  23. LORAZEPAM [Concomitant]
  24. MULTIPLE VITAMIN [Concomitant]
  25. MULTIPLE VITAMIN [Concomitant]
  26. MULTIPLE VITAMIN [Concomitant]
  27. MULTIPLE VITAMIN [Concomitant]
  28. MULTIPLE VITAMIN [Concomitant]
  29. MULTIPLE VITAMIN [Concomitant]
  30. MULTIPLE VITAMIN [Concomitant]
  31. MULTIPLE VITAMIN [Concomitant]
  32. ACETAMINOPHEN AND OXYCODONE HCL [Concomitant]
  33. ACETAMINOPHEN AND OXYCODONE HCL [Concomitant]
     Dosage: 5-325 MG AS NECESSARY
  34. LISINOPRIL [Concomitant]
  35. ATENOLOL [Concomitant]
  36. LEVOTHYROXINE SODIUM [Concomitant]
  37. POTASSIUM CHLORIDE [Concomitant]

REACTIONS (2)
  - COCCIDIOIDOMYCOSIS [None]
  - PNEUMONIA [None]
